FAERS Safety Report 9023107 (Version 1)
Quarter: 2013Q1

REPORT INFORMATION
  Report Type: Spontaneous
  Country: US (occurrence: US)
  Receive Date: 20130120
  Receipt Date: 20130120
  Transmission Date: 20140127
  Serious: No
  Sender: FDA-Public Use
  Company Number: US-ALLERGAN-1214989US

PATIENT
  Age: 33 Year
  Sex: Female

DRUGS (6)
  1. BOTOX? [Suspect]
     Indication: MIGRAINE
     Dosage: 200 UNITS, SINGLE
     Route: 030
     Dates: start: 20121025, end: 20121025
  2. LYRICA [Concomitant]
     Indication: FIBROMYALGIA
     Dosage: UNK UNK, QD
     Route: 048
  3. GLUCOPHAGE                         /00082701/ [Concomitant]
     Indication: GLUCOSE TOLERANCE IMPAIRED
     Dosage: UNK
     Route: 048
  4. URSODIOL [Concomitant]
     Indication: DYSPEPSIA
     Dosage: UNK UNK, QD
     Route: 048
  5. URSODIOL [Concomitant]
     Indication: REFLUX GASTRITIS
  6. AMBIEN [Concomitant]
     Indication: INSOMNIA
     Dosage: UNK UNK, QHS
     Route: 048

REACTIONS (7)
  - Hypoaesthesia [Unknown]
  - Asthenia [Unknown]
  - Muscular weakness [Unknown]
  - Dizziness [Unknown]
  - Vision blurred [Unknown]
  - Paralysis [Unknown]
  - Dysuria [Unknown]
